FAERS Safety Report 16974147 (Version 1)
Quarter: 2019Q4

REPORT INFORMATION
  Report Type: Spontaneous
  Country: IT (occurrence: IT)
  Receive Date: 20191030
  Receipt Date: 20191030
  Transmission Date: 20200122
  Serious: Yes (Other)
  Sender: FDA-Public Use
  Company Number: IT-MACLEODS PHARMACEUTICALS US LTD-MAC2019023492

PATIENT

DRUGS (1)
  1. CLOBETASOL 0.05 % W/W [Suspect]
     Active Substance: CLOBETASOL
     Indication: PSORIASIS
     Dosage: 100 GRAM, EVERY TWO WEEKS, CREAM,
     Route: 061

REACTIONS (4)
  - Osteopenia [Recovered/Resolved]
  - Adrenal insufficiency [Recovered/Resolved]
  - Intentional product misuse [Recovered/Resolved]
  - Cushing^s syndrome [Recovered/Resolved]
